FAERS Safety Report 6914793 (Version 2)
Quarter: 2013Q1

REPORT INFORMATION
  Report Type: Spontaneous
  Country: US (occurrence: None)
  Receive Date: 20090209
  Receipt Date: 20130212
  Transmission Date: 20140127
  Serious: Yes (Other)
  Sender: FDA-Public Use
  Company Number: KV200900144

PATIENT
  Age: 49 Year
  Sex: Female
  Weight: 68 kg

DRUGS (3)
  1. MORPHINE SULFATE IR TABLET [Suspect]
     Indication: BACK PAIN
     Dosage: 15 MG, 1 TAB Q 3 HRS PRN, ORAL
     Dates: start: 20080810, end: 200809
  2. MORPHINE SULFATE IR TABLET [Suspect]
     Indication: PROCEDURAL PAIN
     Dosage: 15 MG, 1 TAB Q 3 HRS PRN, ORAL
     Dates: start: 20080810, end: 200809
  3. PROZAC /00724401/  (FLUOXETINE) [Concomitant]

REACTIONS (23)
  - Flushing [None]
  - Rhinorrhoea [None]
  - Asthenia [None]
  - Vision blurred [None]
  - Product quality issue [None]
  - Drug withdrawal syndrome [None]
  - Post-traumatic stress disorder [None]
  - Weight increased [None]
  - Dyspepsia [None]
  - Muscle twitching [None]
  - Dissociation [None]
  - Suicidal ideation [None]
  - Vomiting [None]
  - Flushing [None]
  - Muscle spasms [None]
  - Nausea [None]
  - Rhinorrhoea [None]
  - Activities of daily living impaired [None]
  - Panic attack [None]
  - Depression [None]
  - Menstruation irregular [None]
  - Adnexa uteri pain [None]
  - Musculoskeletal discomfort [None]
